FAERS Safety Report 6731233-7 (Version None)
Quarter: 2010Q2

REPORT INFORMATION
  Report Type: 
  Country: None (occurrence: None)
  Receive Date: 20100518
  Receipt Date: 20100505
  Transmission Date: 20101027
  Serious: Yes (Hospitalization)
  Sender: FDA-Public Use
  Company Number: US-ELI_LILLY_AND_COMPANY-US201005002666

PATIENT
  Sex: Female

DRUGS (5)
  1. FORTEO [Suspect]
     Indication: OSTEOPOROSIS
     Dosage: 20 UG, DAILY (1/D)
     Dates: start: 20090101
  2. LORTAB [Concomitant]
     Dosage: UNK, AS NEEDED
  3. CALCIUM [Concomitant]
     Dosage: 1200 MG, DAILY (1/D)
  4. VITAMIN D [Concomitant]
  5. NEXIUM [Concomitant]

REACTIONS (4)
  - MOBILITY DECREASED [None]
  - MUSCLE SPASMS [None]
  - PAIN [None]
  - SPINAL FRACTURE [None]
